FAERS Safety Report 7723736-3 (Version None)
Quarter: 2011Q3

REPORT INFORMATION
  Report Type: 
  Country: None (occurrence: None)
  Receive Date: 20110901
  Receipt Date: 20110825
  Transmission Date: 20111222
  Serious: Yes (Hospitalization)
  Sender: FDA-Public Use
  Company Number: US-JNJFOC-20110812850

PATIENT
  Sex: Female
  Weight: 36.6 kg

DRUGS (13)
  1. METHOTREXATE [Suspect]
     Indication: PRODUCT USED FOR UNKNOWN INDICATION
  2. FISH OIL [Concomitant]
  3. LANSOPRAZOLE [Concomitant]
  4. HUMIRA [Suspect]
     Indication: PRODUCT USED FOR UNKNOWN INDICATION
     Dates: start: 20090218
  5. CHOLECALCIFEROL [Concomitant]
  6. FERROUS SULFATE TAB [Concomitant]
  7. REMICADE [Suspect]
     Indication: CROHN'S DISEASE
     Route: 042
     Dates: start: 20080205, end: 20090114
  8. REMICADE [Suspect]
     Indication: INFLAMMATORY BOWEL DISEASE
     Route: 042
     Dates: start: 20080205, end: 20090114
  9. FOLIC ACID [Concomitant]
  10. PEPTAMEN [Concomitant]
     Indication: ENTERAL NUTRITION
  11. MULTI-VITAMINS [Concomitant]
  12. ANTIBIOTIC [Concomitant]
  13. ACETAMINOPHEN [Concomitant]

REACTIONS (1)
  - CROHN'S DISEASE [None]
